FAERS Safety Report 6551105-0 (Version None)
Quarter: 2010Q1

REPORT INFORMATION
  Report Type: 
  Country: None (occurrence: None)
  Receive Date: 20100125
  Receipt Date: 20100114
  Transmission Date: 20100710
  Serious: Yes (Hospitalization)
  Sender: FDA-Public Use
  Company Number: JP-ALLERGAN-1000896US

PATIENT
  Age: 88 Year
  Sex: Female

DRUGS (14)
  1. ALESION TABLET [Suspect]
     Indication: CELLULITIS
     Dosage: 20 MG, QD
     Route: 048
     Dates: start: 20091125, end: 20100104
  2. ALESION TABLET [Suspect]
     Indication: PEMPHIGOID
  3. VIBRAMYCIN [Suspect]
     Indication: CELLULITIS
     Dosage: 100 MG, QD
     Route: 048
     Dates: start: 20091125, end: 20100104
  4. VIBRAMYCIN [Suspect]
     Indication: PEMPHIGOID
  5. NICOTINAMIDE [Suspect]
     Indication: CELLULITIS
     Dosage: 9 G, QD
     Route: 048
     Dates: start: 20091125, end: 20100104
  6. NICOTINAMIDE [Suspect]
     Indication: PEMPHIGOID
  7. RINDERON [Suspect]
     Indication: CELLULITIS
     Dosage: UNK
     Route: 062
     Dates: start: 20091125, end: 20100104
  8. RINDERON [Suspect]
     Indication: PEMPHIGOID
  9. HIRUDOID [Suspect]
     Indication: CELLULITIS
     Dosage: UNK
     Route: 062
     Dates: start: 20091125, end: 20100104
  10. HIRUDOID [Suspect]
     Indication: PEMPHIGOID
  11. PERDIPINE [Concomitant]
     Indication: HYPERTENSION
     Dosage: UNK
     Route: 048
  12. MICARDIS [Concomitant]
     Indication: HYPERTENSION
     Dosage: 40 MG, QD
     Route: 048
  13. SENNOSIDE A+B CALCIUM [Concomitant]
     Indication: CONSTIPATION
     Route: 048
  14. MAGNESIUM [Concomitant]
     Indication: CONSTIPATION
     Dosage: 1 G, QD
     Route: 048

REACTIONS (1)
  - INTERSTITIAL LUNG DISEASE [None]
